FAERS Safety Report 7413620-7 (Version None)
Quarter: 2011Q2

REPORT INFORMATION
  Report Type: 
  Country: None (occurrence: None)
  Receive Date: 20110413
  Receipt Date: 20110411
  Transmission Date: 20111010
  Serious: Yes (Death, Other)
  Sender: FDA-Public Use
  Company Number: US-AMGEN-QUU443872

PATIENT
  Age: 26 Year
  Sex: Female

DRUGS (7)
  1. NPLATE [Suspect]
     Indication: IDIOPATHIC THROMBOCYTOPENIC PURPURA
     Dosage: 2 A?G/KG, UNK
     Dates: start: 20091102, end: 20100611
  2. NPLATE [Suspect]
     Dates: start: 20091026
  3. NPLATE [Suspect]
     Dates: start: 20091026
  4. CORTICOSTEROID NOS [Concomitant]
     Dosage: UNK UNK, UNK
  5. NPLATE [Suspect]
     Dates: start: 20091026
  6. NPLATE [Suspect]
     Dates: start: 20091026
  7. NPLATE [Suspect]
     Dates: start: 20091026

REACTIONS (13)
  - INTERSTITIAL LUNG DISEASE [None]
  - IRON DEFICIENCY ANAEMIA [None]
  - ACUTE RESPIRATORY FAILURE [None]
  - SEPSIS [None]
  - PNEUMONIA [None]
  - CARDIOGENIC SHOCK [None]
  - ANTIPHOSPHOLIPID SYNDROME [None]
  - CALCIPHYLAXIS [None]
  - SEPTIC SHOCK [None]
  - BLOOD UREA ABNORMAL [None]
  - CARDIAC ARREST [None]
  - HYPOVOLAEMIC SHOCK [None]
  - RENAL FAILURE CHRONIC [None]
